FAERS Safety Report 6047363-1 (Version None)
Quarter: 2009Q1

REPORT INFORMATION
  Report Type: 
  Country: None (occurrence: None)
  Receive Date: 20090122
  Receipt Date: 20090115
  Transmission Date: 20090719
  Serious: Yes (Life-Threatening)
  Sender: FDA-Public Use
  Company Number: CA-MERCK-0901USA02922

PATIENT
  Age: 63 Year
  Sex: Female

DRUGS (4)
  1. PRINIVIL [Suspect]
     Route: 048
  2. ZESTRIL [Suspect]
     Route: 048
  3. PREMARIN PLUS [Concomitant]
     Route: 065
  4. HYDROCHLOROTHIAZIDE AND SPIRONOLACTONE [Concomitant]
     Route: 065

REACTIONS (3)
  - HYPERSENSITIVITY [None]
  - OEDEMA MOUTH [None]
  - TONGUE OEDEMA [None]
